FAERS Safety Report 13353674 (Version 1)
Quarter: 2017Q1

REPORT INFORMATION
  Report Type: Spontaneous
  Country: US (occurrence: US)
  Receive Date: 20170319
  Receipt Date: 20170319
  Transmission Date: 20170429
  Serious: Yes (Life-Threatening, Disabling)
  Sender: FDA-Public Use
  Company Number: None

PATIENT
  Age: 30 Year
  Sex: Male
  Weight: 90 kg

DRUGS (4)
  1. PAXIL [Suspect]
     Active Substance: PAROXETINE HYDROCHLORIDE
     Indication: PANIC ATTACK
     Dosage: ?          QUANTITY:30 TABLET(S);?
     Route: 048
  2. RANITIDINE. [Concomitant]
     Active Substance: RANITIDINE
  3. DANTROLENE SODIUM. [Concomitant]
     Active Substance: DANTROLENE SODIUM
  4. ALPRAZOLAM. [Concomitant]
     Active Substance: ALPRAZOLAM

REACTIONS (10)
  - Malaise [None]
  - Decreased appetite [None]
  - Insomnia [None]
  - Skin discolouration [None]
  - Cerebral palsy [None]
  - Headache [None]
  - Asthenia [None]
  - Social anxiety disorder [None]
  - Respiratory arrest [None]
  - Apparent death [None]

NARRATIVE: CASE EVENT DATE: 19930620
